FAERS Safety Report 8520966-8 (Version None)
Quarter: 2012Q3

REPORT INFORMATION
  Report Type: 
  Country: None (occurrence: None)
  Receive Date: 20120719
  Receipt Date: 20120709
  Transmission Date: 20120928
  Serious: Yes (Other)
  Sender: FDA-Public Use
  Company Number: US-ALLERGAN-1209462US

PATIENT
  Age: 66 Year
  Sex: Female

DRUGS (9)
  1. LAMOTRIGINE [Concomitant]
     Dosage: 100 MG, UNK
     Route: 060
  2. KLONOPIN [Concomitant]
     Indication: ANXIETY
     Dosage: 1 MG, UNK
  3. BUTALBITAL, ASPIRIN, AND CAFFEINE [Concomitant]
     Indication: HEADACHE
     Dosage: UNK
  4. LIPITOR [Concomitant]
     Indication: BLOOD CHOLESTEROL
     Dosage: 20 MG, UNK
  5. AMITRIPTYLINE HCL [Concomitant]
     Indication: PRODUCT USED FOR UNKNOWN INDICATION
     Dosage: 50 MG, QHS
  6. MODAFINIL [Concomitant]
     Indication: PRODUCT USED FOR UNKNOWN INDICATION
     Dosage: 200 MG, UNK
  7. EFFEXOR [Concomitant]
     Indication: PRODUCT USED FOR UNKNOWN INDICATION
  8. BOTULINUM TOXIN TYPE A [Suspect]
     Indication: MIGRAINE
     Dosage: 31 INJECTIONS
     Route: 030
     Dates: start: 20120628, end: 20120628
  9. LAMOTRIGINE [Concomitant]
     Indication: HEADACHE
     Dosage: 100 MG, UNK
     Route: 060

REACTIONS (5)
  - HEADACHE [None]
  - APHAGIA [None]
  - NAUSEA [None]
  - ASTHENIA [None]
  - ABDOMINAL DISCOMFORT [None]
